FAERS Safety Report 8081641-X (Version None)
Quarter: 2012Q1

REPORT INFORMATION
  Report Type: 
  Country: None (occurrence: None)
  Receive Date: 20120130
  Receipt Date: 20120125
  Transmission Date: 20120608
  Serious: Yes (Other)
  Sender: FDA-Public Use
  Company Number: CA-PFIZER INC-2011297591

PATIENT
  Age: 74 Year
  Sex: Male
  Weight: 105.22 kg

DRUGS (3)
  1. VARENICLINE TARTRATE [Suspect]
     Indication: SMOKING CESSATION THERAPY
     Dosage: ^USUAL DOSE^ ONCE DAILY
     Dates: start: 20111024, end: 20111202
  2. FLOVENT [Concomitant]
     Indication: ASTHMA
     Dosage: UNK, AS NEEDED
  3. REACTINE [Concomitant]
     Indication: MULTIPLE ALLERGIES
     Dosage: UNK, AS NEEDED

REACTIONS (3)
  - MYOCARDIAL INFARCTION [None]
  - HYPERTENSION [None]
  - BLOOD PRESSURE FLUCTUATION [None]
